FAERS Safety Report 13506747 (Version 1)
Quarter: 2017Q2

REPORT INFORMATION
  Report Type: Report from Study
  Country: CA (occurrence: CA)
  Receive Date: 20170502
  Receipt Date: 20170502
  Transmission Date: 20170830
  Serious: Yes (Disabling)
  Sender: FDA-Public Use
  Company Number: CA-IPSEN BIOPHARMACEUTICALS, INC.-2017-03489

PATIENT
  Age: 72 Year
  Sex: Male
  Weight: 87.54 kg

DRUGS (1)
  1. SOMATULINE AUTOGEL 120MG [Suspect]
     Active Substance: LANREOTIDE ACETATE
     Indication: NEUROENDOCRINE TUMOUR
     Dosage: 120 MG
     Route: 058
     Dates: start: 20170228

REACTIONS (11)
  - Diarrhoea [Not Recovered/Not Resolved]
  - Abdominal discomfort [Not Recovered/Not Resolved]
  - Weight increased [Not Recovered/Not Resolved]
  - Dyspnoea [Unknown]
  - Rales [Unknown]
  - Abdominal pain [Not Recovered/Not Resolved]
  - Respiratory rate increased [Unknown]
  - Hypoventilation [Unknown]
  - Abdominal distension [Not Recovered/Not Resolved]
  - Use of accessory respiratory muscles [Unknown]
  - Sputum discoloured [Unknown]

NARRATIVE: CASE EVENT DATE: 2017
